FAERS Safety Report 5451162-9 (Version None)
Quarter: 2007Q3

REPORT INFORMATION
  Report Type: 
  Country: None (occurrence: None)
  Receive Date: 20070802
  Receipt Date: 20070129
  Transmission Date: 20080115
  Serious: Yes (Hospitalization, Other)
  Sender: FDA-Public Use
  Company Number: 2006143131

PATIENT
  Age: 64 Year
  Sex: Male
  Weight: 97.1 kg

DRUGS (3)
  1. CAMPTOSAR [Suspect]
     Indication: OESOPHAGEAL CARCINOMA
     Dosage: (100 MG)
     Dates: start: 20060926
  2. ATENOLOL [Concomitant]
  3. HYTRIN [Concomitant]

REACTIONS (1)
  - CEREBROVASCULAR ACCIDENT [None]
